FAERS Safety Report 9343009 (Version 3)
Quarter: 2014Q1

REPORT INFORMATION
  Report Type: Spontaneous
  Country: US (occurrence: US)
  Receive Date: 20130611
  Receipt Date: 20140328
  Transmission Date: 20141002
  Serious: Yes (Hospitalization)
  Sender: FDA-Public Use
  Company Number: US-B.I. PHARMACEUTICALS,INC./RIDGEFIELD-2013-BI-16251BP

PATIENT
  Age: 85 Year
  Sex: Female
  Weight: 71 kg

DRUGS (10)
  1. PRADAXA [Suspect]
     Indication: ATRIAL FIBRILLATION
     Dosage: 300 MG
     Route: 048
     Dates: start: 20110211, end: 20110706
  2. PRADAXA [Suspect]
     Indication: THROMBOSIS PROPHYLAXIS
     Route: 065
     Dates: end: 20110810
  3. KRISTALOSE [Concomitant]
     Route: 065
  4. CYMBALTA [Concomitant]
     Dosage: 60 MG
     Route: 065
  5. KLOR-CON [Concomitant]
     Dosage: 10 MEQ
     Route: 065
  6. PRAMIPEXOLE [Concomitant]
     Route: 065
  7. OMEPRAZOLE [Concomitant]
     Dosage: 20 MG
     Route: 065
  8. FEXOFENADINE [Concomitant]
     Dosage: 180 MG
     Route: 065
     Dates: start: 2004, end: 2011
  9. LIPITOR [Concomitant]
     Dosage: 20 MG
     Route: 065
     Dates: start: 2004, end: 2011
  10. METOPROLOL [Concomitant]
     Dosage: 25 MG
     Route: 065

REACTIONS (6)
  - Gastrointestinal haemorrhage [Unknown]
  - Haemorrhagic anaemia [Unknown]
  - Haematochezia [Unknown]
  - Melaena [Recovered/Resolved]
  - Haemorrhoidal haemorrhage [Recovered/Resolved]
  - Drug effect decreased [Unknown]
